FAERS Safety Report 7413217-9 (Version None)
Quarter: 2011Q2

REPORT INFORMATION
  Report Type: 
  Country: None (occurrence: None)
  Receive Date: 20110408
  Receipt Date: 20110408
  Transmission Date: 20111010
  Serious: Yes (Hospitalization)
  Sender: FDA-Public Use
  Company Number: None

PATIENT
  Age: 61 Year
  Sex: Male
  Weight: 75 kg

DRUGS (1)
  1. CLOPIDOGREL [Suspect]
     Dosage: 300 MG ONCE PO
     Route: 048
     Dates: start: 20110328, end: 20110328

REACTIONS (3)
  - HYPOTENSION [None]
  - ANGIOEDEMA [None]
  - DYSPNOEA [None]
